FAERS Safety Report 26190771 (Version 1)
Quarter: 2025Q4

REPORT INFORMATION
  Report Type: Spontaneous
  Country: EG (occurrence: EG)
  Receive Date: 20251223
  Receipt Date: 20251223
  Transmission Date: 20260118
  Serious: Yes (Death, Hospitalization, Other)
  Sender: RANBAXY
  Company Number: EG-SUN PHARMACEUTICAL INDUSTRIES INC-2025R1-543094

PATIENT
  Age: 52 Year
  Sex: Male

DRUGS (1)
  1. DEXAMETHASONE [Suspect]
     Active Substance: DEXAMETHASONE
     Indication: Haemophagocytic lymphohistiocytosis
     Dosage: UNKNOWN
     Route: 065

REACTIONS (2)
  - Disease progression [Fatal]
  - Therapy partial responder [Unknown]
